FAERS Safety Report 9067157 (Version 2)
Quarter: 2013Q2

REPORT INFORMATION
  Report Type: Spontaneous
  Country: AU (occurrence: AU)
  Receive Date: 20130214
  Receipt Date: 20130401
  Transmission Date: 20140414
  Serious: Yes (Disabling)
  Sender: FDA-Public Use
  Company Number: PHHY2012AU090271

PATIENT
  Age: 71 Year
  Sex: Male

DRUGS (5)
  1. TASIGNA [Suspect]
     Indication: CHRONIC MYELOID LEUKAEMIA
     Route: 048
     Dates: start: 20120904, end: 20121016
  2. TASIGNA [Suspect]
     Dosage: 400 MG, DAILY
     Route: 048
     Dates: start: 20121201, end: 20121211
  3. LIPITOR [Concomitant]
     Indication: LIPIDS DECREASED
     Dosage: 80 MG, DAILY
     Route: 048
  4. LIPIDIL [Concomitant]
     Indication: LIPIDS DECREASED
     Dosage: 145 MG, DAILY
     Route: 048
  5. SYMBICORT [Concomitant]
     Indication: ASTHMA
     Dosage: 1 DF, BID

REACTIONS (7)
  - Epistaxis [Recovered/Resolved]
  - Amnesia [Recovered/Resolved]
  - Anxiety [Recovered/Resolved]
  - Abdominal pain upper [Recovered/Resolved]
  - Feeling abnormal [Recovered/Resolved]
  - Malaise [Recovered/Resolved]
  - Asthenia [Recovered/Resolved]
